FAERS Safety Report 24704580 (Version 1)
Quarter: 2024Q4

REPORT INFORMATION
  Report Type: Spontaneous
  Country: GB (occurrence: GB)
  Receive Date: 20241206
  Receipt Date: 20241206
  Transmission Date: 20250114
  Serious: Yes (Other)
  Sender: ROCHE
  Company Number: None

PATIENT
  Age: 71 Year
  Sex: Female
  Weight: 45 kg

DRUGS (1)
  1. AVASTIN [Suspect]
     Active Substance: BEVACIZUMAB
     Indication: Chemotherapy
     Route: 065
     Dates: start: 20240426, end: 20241115

REACTIONS (1)
  - Congenital perforated nasal septum [Not Recovered/Not Resolved]

NARRATIVE: CASE EVENT DATE: 20241105
